FAERS Safety Report 21396695 (Version 1)
Quarter: 2022Q3

REPORT INFORMATION
  Report Type: Spontaneous
  Country: US (occurrence: None)
  Receive Date: 20220930
  Receipt Date: 20220930
  Transmission Date: 20221026
  Serious: No
  Sender: FDA-Public Use
  Company Number: US-Spark Therapeutics, Inc.-US-SPK-21-00067

PATIENT
  Age: 6 Year
  Sex: Female

DRUGS (4)
  1. LUXTURNA [Suspect]
     Active Substance: VORETIGENE NEPARVOVEC-RZYL
     Indication: Product used for unknown indication
     Dates: start: 20210713, end: 20210713
  2. LUXTURNA [Suspect]
     Active Substance: VORETIGENE NEPARVOVEC-RZYL
     Dates: start: 20210720, end: 20210720
  3. LUXTURNA [Suspect]
     Active Substance: VORETIGENE NEPARVOVEC-RZYL
     Indication: Product used for unknown indication
     Dates: start: 20210713, end: 20210713
  4. LUXTURNA [Suspect]
     Active Substance: VORETIGENE NEPARVOVEC-RZYL
     Dates: start: 20210720, end: 20210720

REACTIONS (2)
  - Vitreous opacities [Recovered/Resolved]
  - Vitreous opacities [Recovered/Resolved]

NARRATIVE: CASE EVENT DATE: 20210713
